FAERS Safety Report 17652934 (Version 1)
Quarter: 2020Q2

REPORT INFORMATION
  Report Type: Spontaneous
  Country: US (occurrence: US)
  Receive Date: 20200409
  Receipt Date: 20200409
  Transmission Date: 20200713
  Serious: Yes (Hospitalization)
  Sender: FDA-Public Use
  Company Number: US-BAYER-2020-056604

PATIENT
  Age: 74 Year
  Sex: Male

DRUGS (2)
  1. TICAGRELOR. [Interacting]
     Active Substance: TICAGRELOR
     Indication: CORONARY ARTERY DISEASE
  2. ACETYLSALICYLIC ACID [Suspect]
     Active Substance: ASPIRIN
     Indication: CORONARY ARTERY DISEASE

REACTIONS (3)
  - Haemoptysis [None]
  - Pneumonitis [None]
  - Labelled drug-drug interaction medication error [None]
